FAERS Safety Report 4757066-9 (Version None)
Quarter: 2005Q3

REPORT INFORMATION
  Report Type: 
  Country: None (occurrence: None)
  Receive Date: 20050829
  Receipt Date: 20050829
  Transmission Date: 20060218
  Serious: Yes (Hospitalization)
  Sender: FDA-Public Use
  Company Number: None

PATIENT
  Age: 65 Year
  Sex: Female
  Weight: 100 kg

DRUGS (12)
  1. PREDNISONE [Suspect]
     Indication: LYMPHOMA
     Dosage: PO 60 MG
     Route: 048
     Dates: start: 20050719
  2. ADRIAMYCIN PFS [Suspect]
     Indication: LYMPHOMA
     Dosage: 50 MG IV
     Route: 042
     Dates: start: 20050719
  3. ADRIAMYCIN PFS [Suspect]
     Indication: LYMPHOMA
     Dosage: 50 MG IV
     Route: 042
     Dates: start: 20050726
  4. CYTOXAN [Suspect]
     Indication: LYMPHOMA
     Dosage: 1300 MG I CY 6 D1 + D8
     Dates: start: 20050719
  5. CYTOXAN [Suspect]
     Indication: LYMPHOMA
     Dosage: 1300 MG I CY 6 D1 + D8
     Dates: start: 20050726
  6. ETOPOSIDE [Suspect]
     Indication: LYMPHOMA
     Dosage: 240 MG IV CYCLE 6 D1 + D8
     Route: 042
     Dates: start: 20050919
  7. ETOPOSIDE [Suspect]
     Indication: LYMPHOMA
     Dosage: 240 MG IV CYCLE 6 D1 + D8
     Route: 042
     Dates: start: 20050926
  8. THYROID EXTRACT [Concomitant]
  9. TOPROL-XL [Concomitant]
  10. ZOLOFT [Concomitant]
  11. LASIX [Concomitant]
  12. TIMOLOL EYEDROP [Concomitant]

REACTIONS (9)
  - ABDOMINAL PAIN [None]
  - BACTERIAL INFECTION [None]
  - BLOOD CULTURE POSITIVE [None]
  - DIARRHOEA [None]
  - GASTROINTESTINAL INFECTION [None]
  - GASTROINTESTINAL INFLAMMATION [None]
  - NAUSEA [None]
  - PYREXIA [None]
  - VOMITING [None]
